FAERS Safety Report 6758409-7 (Version None)
Quarter: 2010Q2

REPORT INFORMATION
  Report Type: 
  Country: None (occurrence: None)
  Receive Date: 20100607
  Receipt Date: 20100528
  Transmission Date: 20101027
  Serious: Yes (Hospitalization)
  Sender: FDA-Public Use
  Company Number: DE-ROCHE-694810

PATIENT
  Sex: Female
  Weight: 100 kg

DRUGS (9)
  1. BEVACIZUMAB [Suspect]
     Indication: BREAST CANCER
     Dosage: DOSE: 15 MG/KG, FORM: INFUSION, DATE OF LAST DOSE PRIOR TO SAE : 19 MAY 2010
     Route: 042
     Dates: start: 20100224
  2. EPIRUBICIN [Suspect]
     Indication: BREAST CANCER
     Dosage: FORM: INFUSION, DATE OF LAST DOSE PRIOR TO SAE: 28 APRIL 2010
     Route: 042
     Dates: start: 20100224
  3. CYCLOPHOSPHAMIDE [Suspect]
     Indication: BREAST CANCER
     Dosage: FORM: INFUSION, DATE OF LAST DOSE PRIOR TO SAE: 28 APRIL 2010
     Route: 042
     Dates: start: 20100224
  4. DOCETAXEL [Suspect]
     Indication: BREAST CANCER
     Dosage: FORM: INFUSION, DATE OF LAST DOSE PRIOR TO SAE: 19 MAY 2010, DOSE: REDUCED.
     Route: 042
  5. DOCETAXEL [Suspect]
     Dosage: DOSE REDUCED.
     Route: 042
  6. DEXAMETHASONE TAB [Concomitant]
     Dates: start: 20100224, end: 20100224
  7. GRANISETRON [Concomitant]
     Dates: start: 20100224, end: 20100224
  8. UROMITEXAN [Concomitant]
     Dates: start: 20100224, end: 20100224
  9. PARACETAMOL [Concomitant]
     Dates: start: 20100224, end: 20100224

REACTIONS (2)
  - MUCOSAL INFLAMMATION [None]
  - NAUSEA [None]
